FAERS Safety Report 5992490-8 (Version None)
Quarter: 2008Q4

REPORT INFORMATION
  Report Type: 
  Country: None (occurrence: None)
  Receive Date: 20081202
  Receipt Date: 20071106
  Transmission Date: 20090506
  Serious: Yes (Other)
  Sender: FDA-Public Use
  Company Number: WAES 0708USA04706

PATIENT
  Age: 53 Year
  Sex: Female

DRUGS (4)
  1. FOSAMAX [Suspect]
     Indication: OSTEOPOROSIS
     Dosage: 70 MG/WKY/PO
     Route: 048
     Dates: start: 20020327, end: 20051102
  2. [THERAPY UNSPECIFIED] [Concomitant]
  3. CALCIUM [Concomitant]
  4. HORMONES [Suspect]

REACTIONS (6)
  - BRUXISM [None]
  - MEDICAL DEVICE COMPLICATION [None]
  - ORAL INFECTION [None]
  - OSTEONECROSIS [None]
  - SENSITIVITY OF TEETH [None]
  - TOOTH FRACTURE [None]
